FAERS Safety Report 8593005-0 (Version None)
Quarter: 2012Q3

REPORT INFORMATION
  Report Type: 
  Country: None (occurrence: None)
  Receive Date: 20120814
  Receipt Date: 19961009
  Transmission Date: 20120928
  Serious: Yes (Death)
  Sender: FDA-Public Use
  Company Number: US-ROCHE-1100901

PATIENT
  Sex: Male

DRUGS (5)
  1. ACTIVASE [Suspect]
     Indication: ACUTE MYOCARDIAL INFARCTION
     Route: 040
     Dates: start: 19960717
  2. HEPARIN [Concomitant]
     Route: 040
  3. ACTIVASE [Suspect]
     Route: 040
     Dates: start: 19960717, end: 19960717
  4. ACTIVASE [Suspect]
     Route: 040
     Dates: start: 19960717, end: 19960717
  5. HEPARIN [Concomitant]
     Route: 040
     Dates: start: 19960717

REACTIONS (1)
  - DEATH [None]
